FAERS Safety Report 12794149 (Version 1)
Quarter: 2016Q3

REPORT INFORMATION
  Report Type: Spontaneous
  Country: US (occurrence: US)
  Receive Date: 20160929
  Receipt Date: 20160929
  Transmission Date: 20161109
  Serious: No
  Sender: FDA-Public Use
  Company Number: US-JNJFOC-20150812873

PATIENT
  Sex: Male

DRUGS (6)
  1. RISPERDAL [Suspect]
     Active Substance: RISPERIDONE
     Indication: AFFECTIVE DISORDER
     Dosage: VARYING DOSE OF 1 MG TO 1.5 MG
     Route: 048
     Dates: start: 199905, end: 200709
  2. INVEGA [Suspect]
     Active Substance: PALIPERIDONE
     Indication: AFFECTIVE DISORDER
     Route: 048
     Dates: start: 201006
  3. RISPERDAL [Suspect]
     Active Substance: RISPERIDONE
     Indication: DEPRESSION
     Dosage: VARYING DOSE OF 1 MG TO 1.5 MG
     Route: 048
     Dates: start: 199905, end: 200709
  4. INVEGA [Suspect]
     Active Substance: PALIPERIDONE
     Indication: DEPRESSION
     Route: 048
     Dates: start: 201006
  5. INVEGA [Suspect]
     Active Substance: PALIPERIDONE
     Indication: DEPRESSION
     Dosage: VARYING DOSE OF 6 MG AND 9 MG
     Route: 048
     Dates: start: 200710, end: 200912
  6. INVEGA [Suspect]
     Active Substance: PALIPERIDONE
     Indication: AFFECTIVE DISORDER
     Dosage: VARYING DOSE OF 6 MG AND 9 MG
     Route: 048
     Dates: start: 200710, end: 200912

REACTIONS (5)
  - Off label use [Unknown]
  - Product use issue [Unknown]
  - Abnormal weight gain [Unknown]
  - Hyperprolactinaemia [Unknown]
  - Gynaecomastia [Unknown]

NARRATIVE: CASE EVENT DATE: 1999
